FAERS Safety Report 13882794 (Version 1)
Quarter: 2017Q3

REPORT INFORMATION
  Report Type: Spontaneous
  Country: US (occurrence: US)
  Receive Date: 20170818
  Receipt Date: 20170818
  Transmission Date: 20171127
  Serious: No
  Sender: FDA-Public Use
  Company Number: US-BIOGEN-2017BI00446550

PATIENT
  Age: 30 Year
  Sex: Male

DRUGS (1)
  1. TECFIDERA [Suspect]
     Active Substance: DIMETHYL FUMARATE
     Indication: MULTIPLE SCLEROSIS
     Route: 065
     Dates: start: 201405, end: 201601

REACTIONS (7)
  - Poor quality sleep [Unknown]
  - Inflammation [Unknown]
  - Demyelination [Unknown]
  - Weight increased [Unknown]
  - Mood swings [Unknown]
  - White matter lesion [Unknown]
  - Tachycardia [Unknown]

NARRATIVE: CASE EVENT DATE: 20151230
